FAERS Safety Report 20005243 (Version 3)
Quarter: 2021Q4

REPORT INFORMATION
  Report Type: Spontaneous
  Country: US (occurrence: US)
  Receive Date: 20211028
  Receipt Date: 20211224
  Transmission Date: 20220303
  Serious: Yes (Other)
  Sender: FDA-Public Use
  Company Number: US-BIOVITRUM-2021US9411

PATIENT
  Age: 5 Month
  Sex: Male
  Weight: 10 kg

DRUGS (11)
  1. SYNAGIS [Suspect]
     Active Substance: PALIVIZUMAB
     Indication: Cystic fibrosis
     Dosage: SYNAGIS 100MG/1ML VL LIQUID
     Route: 030
     Dates: start: 202107
  2. KITABIS PAK [Concomitant]
     Active Substance: TOBRAMYCIN
  3. OMEPRAZOLE 100 % POWDER [Concomitant]
  4. PULMOZYME [Concomitant]
     Active Substance: DORNASE ALFA
  5. SYNAGIS [Suspect]
     Active Substance: PALIVIZUMAB
     Indication: Antiviral prophylaxis
  6. FAMOTIDINE 100 % POWDER [Concomitant]
  7. SYNAGIS [Suspect]
     Active Substance: PALIVIZUMAB
     Indication: Respiratory disorder
  8. ALBUTEROL SULFATE [Concomitant]
     Active Substance: ALBUTEROL SULFATE
  9. POLY-VI-SOL 250-50/ML DROPS [Concomitant]
  10. HYPER-SAL 3.5 % VIAL-NEB [Concomitant]
  11. KALYDECO [Concomitant]
     Active Substance: IVACAFTOR

REACTIONS (2)
  - Pseudomonas infection [Recovered/Resolved]
  - Ear infection [Unknown]

NARRATIVE: CASE EVENT DATE: 20210701
